FAERS Safety Report 4662251-0 (Version None)
Quarter: 2005Q2

REPORT INFORMATION
  Report Type: 
  Country: None (occurrence: None)
  Receive Date: 20050512
  Receipt Date: 20050427
  Transmission Date: 20051028
  Serious: Yes (Other)
  Sender: FDA-Public Use
  Company Number: 220006M05USA

PATIENT
  Age: 15 Year
  Sex: Male

DRUGS (3)
  1. SAIZEN [Suspect]
     Indication: GROWTH HORMONE DEFICIENCY
     Dosage: 1.4 MG, 6 IN 1 WEEKS,
     Dates: start: 20040204, end: 20050411
  2. LUPRON [Suspect]
  3. SYNTHROID [Suspect]

REACTIONS (1)
  - DIABETES MELLITUS INSULIN-DEPENDENT [None]
